FAERS Safety Report 17627812 (Version 7)
Quarter: 2023Q2

REPORT INFORMATION
  Report Type: Spontaneous
  Country: AT (occurrence: AT)
  Receive Date: 20200405
  Receipt Date: 20230607
  Transmission Date: 20230722
  Serious: Yes (Other)
  Sender: FDA-Public Use
  Company Number: AT-CELLTRION INC.-2020AT021094

PATIENT

DRUGS (26)
  1. RITUXIMAB [Suspect]
     Active Substance: RITUXIMAB
     Indication: High-grade B-cell lymphoma
     Dosage: 1400 MG Q4W, 6 CYCLES
     Route: 058
  2. RITUXIMAB [Suspect]
     Active Substance: RITUXIMAB
     Indication: Ocular lymphoma
     Dosage: FIRST LINE THERAPY, 8 CYCLES
  3. RITUXIMAB [Suspect]
     Active Substance: RITUXIMAB
     Indication: Disease recurrence
     Dosage: RE-INDUCTION THERAPY WITH METHOREXATE, 6 CYCLES
  4. RITUXIMAB [Suspect]
     Active Substance: RITUXIMAB
     Indication: Ocular lymphoma
     Dosage: UNK
  5. RITUXIMAB [Suspect]
     Active Substance: RITUXIMAB
     Dosage: UNK
  6. TEMOZOLOMIDE [Suspect]
     Active Substance: TEMOZOLOMIDE
     Indication: Ocular lymphoma
     Dosage: 6 CYCLES, D1-5, Q28.
     Route: 048
  7. TEMOZOLOMIDE [Suspect]
     Active Substance: TEMOZOLOMIDE
     Indication: Ocular lymphoma
     Dosage: (150 MG/M2) D1-5, Q28 (6 CYCLE)
     Route: 048
  8. TEMOZOLOMIDE [Suspect]
     Active Substance: TEMOZOLOMIDE
     Indication: Disease recurrence
  9. TEMOZOLOMIDE [Suspect]
     Active Substance: TEMOZOLOMIDE
     Indication: Ocular lymphoma
  10. POMALIDOMIDE [Suspect]
     Active Substance: POMALIDOMIDE
     Indication: High-grade B-cell lymphoma
     Dosage: 4MG D1-21, Q28D
     Route: 048
  11. POMALIDOMIDE [Suspect]
     Active Substance: POMALIDOMIDE
     Indication: Ocular lymphoma
     Dosage: 4 MG, DAYS 121 EVERY 28 DAYS
     Route: 048
  12. POMALIDOMIDE [Suspect]
     Active Substance: POMALIDOMIDE
     Indication: Disease recurrence
     Dosage: 4 MILLIGRAM, D1-21, Q28D
     Route: 048
  13. POMALIDOMIDE [Suspect]
     Active Substance: POMALIDOMIDE
     Indication: Ocular lymphoma
  14. CYTARABINE [Suspect]
     Active Substance: CYTARABINE
     Indication: Ocular lymphoma
     Dosage: THIRD-LINE SYSTEMIC THERAPY, 4 CYCLES
  15. CYTARABINE [Suspect]
     Active Substance: CYTARABINE
     Indication: Disease recurrence
     Dosage: BIWEEKLY
     Route: 037
  16. CYTARABINE [Suspect]
     Active Substance: CYTARABINE
     Indication: Ocular lymphoma
  17. DEXAMETHASONE [Suspect]
     Active Substance: DEXAMETHASONE
     Indication: High-grade B-cell lymphoma
     Dosage: 20 MILLIGRAM, QW
     Route: 048
  18. DEXAMETHASONE [Suspect]
     Active Substance: DEXAMETHASONE
     Indication: Ocular lymphoma
  19. DEXAMETHASONE [Suspect]
     Active Substance: DEXAMETHASONE
     Indication: Disease recurrence
  20. DEXAMETHASONE [Suspect]
     Active Substance: DEXAMETHASONE
     Indication: Ocular lymphoma
  21. LENALIDOMIDE [Concomitant]
     Active Substance: LENALIDOMIDE
     Indication: Ocular lymphoma
     Dosage: 15 MG ON DAYS 121 EVERY 28 DAYS
  22. LENALIDOMIDE [Concomitant]
     Active Substance: LENALIDOMIDE
     Indication: Disease recurrence
  23. OFATUMUMAB [Concomitant]
     Active Substance: OFATUMUMAB
     Dosage: THIRD-LINE SYSTEMIC THERAPY, 4 CYCLES
  24. METHOTREXATE [Concomitant]
     Active Substance: METHOTREXATE
     Indication: Ocular lymphoma
     Dosage: FIRST LINE THERAPY, 8 CYCLES
  25. METHOTREXATE [Concomitant]
     Active Substance: METHOTREXATE
     Dosage: RE-INDUCTION THERAPY WITH RITUXIMAB, 6 CYCLES
  26. METHOTREXATE [Concomitant]
     Active Substance: METHOTREXATE
     Dosage: UNK

REACTIONS (10)
  - Neurotoxicity [Recovered/Resolved]
  - Adrenal insufficiency [Recovered/Resolved]
  - Ocular lymphoma [Recovering/Resolving]
  - Disease recurrence [Recovering/Resolving]
  - Hypogammaglobulinaemia [Recovered/Resolved]
  - Pneumonia [Recovered/Resolved]
  - Off label use [Recovered/Resolved]
  - Product use in unapproved indication [Unknown]
  - Intentional product use issue [Unknown]
  - Intentional product use issue [Unknown]
